FAERS Safety Report 8769321 (Version 1)
Quarter: 2012Q4

REPORT INFORMATION
  Report Type: 
  Country: AT (occurrence: AT)
  Receive Date: 20120905
  Receipt Date: 20120905
  Transmission Date: 20130627
  Serious: Yes (Hospitalization, Other)
  Sender: FDA-Public Use
  Company Number: AT-ROXANE LABORATORIES, INC.-2012-RO-01775RO

PATIENT
  Age: 23 Year
  Sex: Female

DRUGS (7)
  1. RISPERIDONE [Suspect]
     Indication: SCHIZOPHRENIA, PARANOID TYPE
     Dosage: 6 mg
     Dates: start: 200801
  2. RISPERIDONE [Suspect]
     Dosage: 4 mg
  3. QUETIAPINE FUMARATE [Suspect]
     Indication: SCHIZOPHRENIA, PARANOID TYPE
     Dosage: 1200 mg
  4. BIPERIDEN [Suspect]
     Indication: TREMOR
     Dosage: 8 mg
  5. BIPERIDEN [Suspect]
     Dosage: 18 mg
  6. LAMOTRIGINE [Suspect]
     Indication: PERIVENTRICULAR NODULAR HETEROTOPIA
     Dosage: 100 mg
  7. PROCYCLIDINE [Suspect]
     Indication: TREMOR
     Dosage: 15 mg

REACTIONS (4)
  - Pleurothotonus [Recovered/Resolved with Sequelae]
  - Drug ineffective [Unknown]
  - Tremor [Recovered/Resolved]
  - Dyskinesia [Unknown]
